FAERS Safety Report 9613239 (Version 2)
Quarter: 2014Q2

REPORT INFORMATION
  Report Type: Spontaneous
  Country: JP (occurrence: JP)
  Receive Date: 20131010
  Receipt Date: 20140617
  Transmission Date: 20141212
  Serious: Yes (Other)
  Sender: FDA-Public Use
  Company Number: JP-GLAXOSMITHKLINE-B0928830A

PATIENT
  Sex: Male

DRUGS (1)
  1. VOTRIENT 200MG [Suspect]
     Indication: ANGIOSARCOMA
     Dosage: 400MG PER DAY
     Route: 048
     Dates: start: 20130628

REACTIONS (4)
  - Pancytopenia [Recovered/Resolved]
  - White blood cell count decreased [Recovered/Resolved]
  - Platelet count decreased [Recovered/Resolved]
  - Haematotoxicity [Unknown]
